FAERS Safety Report 9514312 (Version 1)
Quarter: 2013Q3

REPORT INFORMATION
  Report Type: Spontaneous
  Country: BR (occurrence: BR)
  Receive Date: 20130911
  Receipt Date: 20130911
  Transmission Date: 20140515
  Serious: Yes (Other)
  Sender: FDA-Public Use
  Company Number: BR-JNJFOC-20130817560

PATIENT
  Age: 56 Year
  Sex: Female
  Weight: 78 kg

DRUGS (2)
  1. TYLENOL [Suspect]
     Indication: SINUSITIS
     Route: 048
     Dates: start: 20130820, end: 20130827
  2. SULPAN [Concomitant]
     Indication: DEPRESSION
     Route: 048

REACTIONS (5)
  - Depression [Not Recovered/Not Resolved]
  - Insomnia [Not Recovered/Not Resolved]
  - Depressed mood [Not Recovered/Not Resolved]
  - Medication error [Recovered/Resolved]
  - Contraindication to medical treatment [Recovered/Resolved]
